FAERS Safety Report 4914094-8 (Version None)
Quarter: 2006Q1

REPORT INFORMATION
  Report Type: 
  Country: None (occurrence: None)
  Receive Date: 20060213
  Receipt Date: 20060203
  Transmission Date: 20060701
  Serious: Yes (Other)
  Sender: FDA-Public Use
  Company Number: 200610511GDS

PATIENT
  Sex: Female

DRUGS (7)
  1. CIPRO [Suspect]
  2. LASIX [Suspect]
     Dosage: 80 MG, TOTAL DAILY, ORAL
     Route: 048
  3. LEVAQUIN [Suspect]
     Dosage: 500 MG, TOTAL DAILY, ORAL
     Route: 048
  4. ACCUPRIL [Concomitant]
  5. MICRO-K [Concomitant]
  6. PREDNISONE [Concomitant]
  7. TYLENOL W/ CODEINE NO. 3 [Concomitant]

REACTIONS (2)
  - DEHYDRATION [None]
  - VOMITING [None]
